FAERS Safety Report 19770008 (Version 1)
Quarter: 2021Q3

REPORT INFORMATION
  Report Type: Spontaneous
  Country: CN (occurrence: CN)
  Receive Date: 20210831
  Receipt Date: 20210831
  Transmission Date: 20211014
  Serious: Yes (Other)
  Sender: FDA-Public Use
  Company Number: CN-BAXTER-2021BAX026917

PATIENT
  Age: 36 Year
  Sex: Female
  Weight: 59 kg

DRUGS (7)
  1. 0.9% SODIUM CHLORIDE INJECTION [Suspect]
     Active Substance: SODIUM CHLORIDE
     Indication: MEDICATION DILUTION
     Dosage: FOR DEXAMETHASONE PHOSPHATE
     Route: 041
     Dates: start: 20210814
  2. DEXAMETHASONE SODIUM PHOSPHATE. [Suspect]
     Active Substance: DEXAMETHASONE SODIUM PHOSPHATE
     Indication: LIMB DISCOMFORT
  3. 20% MANNITOL INJECTION [Suspect]
     Active Substance: MANNITOL
     Indication: SPINAL OSTEOARTHRITIS
     Route: 041
     Dates: start: 20210813, end: 20210815
  4. 20% MANNITOL INJECTION [Suspect]
     Active Substance: MANNITOL
     Route: 041
     Dates: start: 20210815
  5. DEXAMETHASONE SODIUM PHOSPHATE. [Suspect]
     Active Substance: DEXAMETHASONE SODIUM PHOSPHATE
     Indication: PRURITUS
     Route: 041
     Dates: start: 20210814
  6. SODIUM CHLORIDE. [Suspect]
     Active Substance: SODIUM CHLORIDE
     Indication: MEDICATION DILUTION
     Dosage: FOR PENTOXIFYLLINE
     Route: 041
     Dates: start: 20210813, end: 20210814
  7. PENTOXIFYLLINE. [Suspect]
     Active Substance: PENTOXIFYLLINE
     Indication: SPINAL OSTEOARTHRITIS
     Route: 041
     Dates: start: 20210813, end: 20210814

REACTIONS (3)
  - Pruritus [Recovered/Resolved]
  - Limb discomfort [Unknown]
  - Rash [Recovered/Resolved]

NARRATIVE: CASE EVENT DATE: 20210814
